FAERS Safety Report 8756916 (Version 1)
Quarter: 2012Q4

REPORT INFORMATION
  Report Type: 
  Country: NO (occurrence: NO)
  Receive Date: 20120828
  Receipt Date: 20120828
  Transmission Date: 20130627
  Serious: Yes (Other)
  Sender: FDA-Public Use
  Company Number: NO-PFIZER INC-2012209682

PATIENT
  Age: 24 Year
  Sex: Male

DRUGS (1)
  1. ALPRAZOLAM [Suspect]
     Dosage: 10 tablets at once
     Dates: start: 20120827

REACTIONS (3)
  - Overdose [Unknown]
  - Unresponsive to stimuli [Unknown]
  - Lethargy [Unknown]
